FAERS Safety Report 6507781-1 (Version None)
Quarter: 2009Q4

REPORT INFORMATION
  Report Type: 
  Country: None (occurrence: None)
  Receive Date: 20091221
  Receipt Date: 20091216
  Transmission Date: 20100525
  Serious: Yes (Hospitalization, Other)
  Sender: FDA-Public Use
  Company Number: US-MERCK-0909USA03683

PATIENT
  Age: 65 Year
  Sex: Female

DRUGS (2)
  1. FOSAMAX [Suspect]
     Indication: OSTEOPENIA
     Route: 048
     Dates: start: 20000101, end: 20070101
  2. FOSAMAX [Suspect]
     Route: 048
     Dates: start: 19960101, end: 20060101

REACTIONS (8)
  - DENTAL CARIES [None]
  - ENDOMETRIAL CANCER [None]
  - FEMUR FRACTURE [None]
  - GINGIVAL PAIN [None]
  - LOW TURNOVER OSTEOPATHY [None]
  - MENISCUS LESION [None]
  - OSTEOARTHRITIS [None]
  - SYNOVIAL CYST [None]
